FAERS Safety Report 12462209 (Version 1)
Quarter: 2016Q2

REPORT INFORMATION
  Report Type: Spontaneous
  Country: US (occurrence: US)
  Receive Date: 20160613
  Receipt Date: 20160613
  Transmission Date: 20160815
  Serious: No
  Sender: FDA-Public Use
  Company Number: US-TEIKOKU PHARMA USA-TPU2016-00364

PATIENT
  Sex: Female
  Weight: 54.48 kg

DRUGS (5)
  1. LIDODERM [Suspect]
     Active Substance: LIDOCAINE
     Indication: ARTHRALGIA
  2. LASIX [Suspect]
     Active Substance: FUROSEMIDE
     Indication: FLUID RETENTION
  3. LIDODERM [Suspect]
     Active Substance: LIDOCAINE
     Indication: BACK PAIN
     Dosage: 2-3 PATCHES APPLIED TO RIGHT HIP AND BACK
     Dates: start: 2011
  4. PILL FOR DIABETES [Concomitant]
     Indication: DIABETES MELLITUS
  5. INSULIN [Concomitant]
     Active Substance: INSULIN NOS
     Indication: DIABETES MELLITUS

REACTIONS (4)
  - Fatigue [Unknown]
  - Weight decreased [Unknown]
  - Hypothyroidism [Unknown]
  - Inappropriate schedule of drug administration [Not Recovered/Not Resolved]
